FAERS Safety Report 9847279 (Version 1)
Quarter: 2014Q1

REPORT INFORMATION
  Report Type: Spontaneous
  Country: US (occurrence: US)
  Receive Date: 20140127
  Receipt Date: 20140127
  Transmission Date: 20141002
  Serious: Yes (Hospitalization)
  Sender: FDA-Public Use
  Company Number: US-DYAX CORP.-2013DX000049

PATIENT
  Age: 42 Year
  Sex: Female
  Weight: 76.27 kg

DRUGS (13)
  1. KALBITOR [Suspect]
     Indication: HEREDITARY ANGIOEDEMA
     Route: 058
     Dates: start: 20130308, end: 20130308
  2. KALBITOR [Suspect]
     Route: 058
     Dates: start: 20130309, end: 20130309
  3. KALBITOR [Suspect]
     Route: 058
     Dates: start: 20130311, end: 20130311
  4. KALBITOR [Suspect]
     Route: 058
     Dates: start: 2012
  5. FIRAZYR [Suspect]
     Indication: HEREDITARY ANGIOEDEMA
     Route: 058
     Dates: start: 20130308, end: 20130308
  6. FIRAZYR [Suspect]
     Route: 058
  7. BERINERT [Suspect]
     Indication: HEREDITARY ANGIOEDEMA
     Dosage: DAILY DOSE: 1000 UNITS, DRUG ROUTE: INTRAVENOUS
     Route: 042
     Dates: start: 20130308, end: 20130308
  8. BERINERT [Suspect]
     Dosage: DAILY DOSE: 20 U/KG, DRUG ROUTE: INTRAVENOUS
     Route: 042
  9. SYNTHROID [Concomitant]
     Indication: HYPOTHYROIDISM
  10. LEXAPRO [Concomitant]
     Indication: EMOTIONAL DISORDER
  11. PREDNISONE [Concomitant]
     Indication: HEREDITARY ANGIOEDEMA
  12. BENADRYL [Concomitant]
     Indication: HEREDITARY ANGIOEDEMA
  13. ZANTAC [Concomitant]
     Indication: HEREDITARY ANGIOEDEMA

REACTIONS (2)
  - Hereditary angioedema [Recovered/Resolved]
  - Vision blurred [Recovered/Resolved]
